FAERS Safety Report 9820520 (Version 1)
Quarter: 2014Q1

REPORT INFORMATION
  Report Type: Spontaneous
  Country: FR (occurrence: FR)
  Receive Date: 20140116
  Receipt Date: 20140116
  Transmission Date: 20141002
  Serious: Yes (Hospitalization)
  Sender: FDA-Public Use
  Company Number: FR-PFIZER INC-2014010830

PATIENT
  Age: 91 Year
  Sex: Male

DRUGS (10)
  1. AMLOR [Suspect]
     Dosage: 5 MG, DAILY
     Dates: end: 20131104
  2. LASILIX [Suspect]
     Dosage: 40 MG, 2X/DAY
     Route: 048
     Dates: end: 20131103
  3. LASILIX [Suspect]
     Dosage: 40 MG, DAILY
     Dates: start: 20131104, end: 20131107
  4. EBIXA [Concomitant]
     Dosage: 20 MG, DAILY
     Route: 048
  5. CORDARONE [Concomitant]
     Dosage: 200 MG DAILY, EXCEPTED ON SUNDAYS AND SATURDAYS
     Route: 048
  6. KARDEGIC [Concomitant]
     Dosage: 75 MG, DAILY
     Route: 048
  7. KALEORID [Concomitant]
     Dosage: 1 DF, DAILY
     Route: 048
     Dates: end: 20131107
  8. KALEORID [Concomitant]
     Dosage: 1 DF, DAILY
     Dates: start: 201311
  9. INIPOMP [Concomitant]
     Dosage: 20 MG, DAILY
     Route: 048
  10. TRAVATAN [Concomitant]
     Dosage: 1 GTT, 1X/DAY

REACTIONS (5)
  - Hypotension [Recovered/Resolved]
  - Fall [Recovered/Resolved]
  - Lung infection [Unknown]
  - Urinary tract infection [Unknown]
  - Renal failure acute [Unknown]
